FAERS Safety Report 7681344-7 (Version None)
Quarter: 2011Q3

REPORT INFORMATION
  Report Type: 
  Country: None (occurrence: None)
  Receive Date: 20110812
  Receipt Date: 20110810
  Transmission Date: 20111222
  Serious: Yes (Other)
  Sender: FDA-Public Use
  Company Number: SE-ABBOTT-11P-150-0845381-00

PATIENT
  Sex: Female

DRUGS (1)
  1. SIBUTRAMINE HYDROCHLORIDE MONOHYDRATE [Suspect]
     Indication: OVERWEIGHT
     Dates: end: 20090801

REACTIONS (7)
  - BUNDLE BRANCH BLOCK LEFT [None]
  - DYSPNOEA [None]
  - SYNCOPE [None]
  - FATIGUE [None]
  - CHEST PAIN [None]
  - PAIN IN EXTREMITY [None]
  - LETHARGY [None]
